FAERS Safety Report 4290136-0 (Version None)
Quarter: 2004Q1

REPORT INFORMATION
  Report Type: 
  Country: None (occurrence: None)
  Receive Date: 20040209
  Receipt Date: 20040130
  Transmission Date: 20041129
  Serious: Yes (Death, Hospitalization, Other)
  Sender: FDA-Public Use
  Company Number: 2004006902

PATIENT
  Age: 5 Month
  Sex: Male

DRUGS (7)
  1. DILANTIN INJ [Suspect]
     Indication: CONVULSION
     Dosage: INTRAVENOUS
     Route: 042
     Dates: start: 19991011
  2. PARACETAMOL (PARACETAMOL) [Suspect]
     Indication: ILL-DEFINED DISORDER
     Dosage: 40 MG (QID), ORAL
     Route: 048
     Dates: start: 20000709
  3. CARBAMAZEPINE [Suspect]
     Indication: ILL-DEFINED DISORDER
     Dosage: ORAL
     Route: 048
     Dates: start: 19991026
  4. PARACETAMOL (PARACETAMOL) [Suspect]
     Indication: ILL-DEFINED DISORDER
     Dosage: INTRAVENOUS
     Route: 042
     Dates: start: 20000710
  5. VIGABATRIN (VIGABATRIN) [Suspect]
     Indication: ILL-DEFINED DISORDER
     Dosage: ORAL
     Route: 048
     Dates: start: 19991026
  6. STIRIPENTOL (STIRIPENTOL) [Concomitant]
  7. CLONAZEPAM [Concomitant]

REACTIONS (20)
  - APNOEA [None]
  - CARDIAC ARREST [None]
  - COMA [None]
  - CONVULSION [None]
  - CSF LACTATE INCREASED [None]
  - CSF PROTEIN DECREASED [None]
  - CYANOSIS [None]
  - CYTOLYTIC HEPATITIS [None]
  - EAR INFECTION [None]
  - ENCEPHALOPATHY [None]
  - GASTROOESOPHAGEAL REFLUX DISEASE [None]
  - HAEMATEMESIS [None]
  - HAEMODYNAMIC INSTABILITY [None]
  - HEPATITIS [None]
  - MITOCHONDRIAL CYTOPATHY [None]
  - NERVOUS SYSTEM DISORDER [None]
  - NEUTROPENIA [None]
  - PAROXYSMAL ARRHYTHMIA [None]
  - PYREXIA [None]
  - VOMITING [None]
